FAERS Safety Report 10153737 (Version 2)
Quarter: 2014Q2

REPORT INFORMATION
  Report Type: Spontaneous
  Country: IT (occurrence: IT)
  Receive Date: 20140506
  Receipt Date: 20140619
  Transmission Date: 20141212
  Serious: Yes (Other)
  Sender: FDA-Public Use
  Company Number: IT-ROCHE-1393187

PATIENT
  Age: 39 Year
  Sex: Female

DRUGS (2)
  1. RIVOTRIL [Suspect]
     Indication: PRODUCT USED FOR UNKNOWN INDICATION
     Route: 048
     Dates: start: 20131126, end: 20131126
  2. SEREUPIN [Suspect]
     Indication: PRODUCT USED FOR UNKNOWN INDICATION
     Route: 048
     Dates: start: 20131122, end: 20131126

REACTIONS (4)
  - Drug abuse [Recovering/Resolving]
  - Movement disorder [Recovering/Resolving]
  - Speech disorder [Recovering/Resolving]
  - Sopor [Recovering/Resolving]
